FAERS Safety Report 12347214 (Version 1)
Quarter: 2016Q2

REPORT INFORMATION
  Report Type: Spontaneous
  Country: US (occurrence: None)
  Receive Date: 20160506
  Receipt Date: 20160506
  Transmission Date: 20160815
  Serious: No
  Sender: FDA-Public Use
  Company Number: None

PATIENT
  Sex: Male
  Weight: 32.5 kg

DRUGS (2)
  1. GUANFACINE ER 1MG [Suspect]
     Active Substance: GUANFACINE
     Indication: ATTENTION DEFICIT/HYPERACTIVITY DISORDER
     Route: 048
     Dates: start: 20160101
  2. GUANFACINE ER 2MG [Suspect]
     Active Substance: GUANFACINE
     Indication: ATTENTION DEFICIT/HYPERACTIVITY DISORDER
     Dosage: 2 MG QAM BY MOUTH
     Route: 048
     Dates: start: 20160101

REACTIONS (6)
  - Cognitive disorder [None]
  - Disease recurrence [None]
  - Psychomotor hyperactivity [None]
  - Impulsive behaviour [None]
  - Product substitution issue [None]
  - Distractibility [None]
